FAERS Safety Report 8219252-5 (Version None)
Quarter: 2012Q1

REPORT INFORMATION
  Report Type: 
  Country: None (occurrence: None)
  Receive Date: 20120319
  Receipt Date: 20120306
  Transmission Date: 20120608
  Serious: Yes (Hospitalization, Other)
  Sender: FDA-Public Use
  Company Number: DE-ELI_LILLY_AND_COMPANY-DE201203001711

PATIENT
  Age: 47 Year
  Sex: Male

DRUGS (4)
  1. ZYPREXA [Suspect]
     Dosage: 20 MG, QD
     Route: 048
     Dates: start: 20111111, end: 20111215
  2. ZYPREXA [Suspect]
     Dosage: 15 MG, QD
     Route: 048
     Dates: start: 20111216, end: 20111223
  3. EUNERPAN [Concomitant]
     Dosage: UNK
     Dates: start: 20111210
  4. NEUROCIL [Concomitant]

REACTIONS (4)
  - NERVOUS SYSTEM DISORDER [None]
  - FALL [None]
  - GRAND MAL CONVULSION [None]
  - SOMNOLENCE [None]
